FAERS Safety Report 24075600 (Version 2)
Quarter: 2024Q3

REPORT INFORMATION
  Report Type: Spontaneous
  Country: AU (occurrence: AU)
  Receive Date: 20240710
  Receipt Date: 20240712
  Transmission Date: 20241016
  Serious: Yes (Life-Threatening, Hospitalization)
  Sender: PFIZER
  Company Number: AU-MLMSERVICE-20240628-PI117210-00175-1

PATIENT
  Age: 4 Decade
  Sex: Female

DRUGS (3)
  1. HEPARIN [Suspect]
     Active Substance: HEPARIN SODIUM
     Indication: Anticoagulant therapy
     Dosage: FREQ:1 H;UNFRACTIONATED, INFUSION
  2. HEPARIN [Suspect]
     Active Substance: HEPARIN SODIUM
     Dosage: FREQ:1 H;UNFRACTIONATED, INFUSION
  3. ACETYLCYSTEINE [Concomitant]
     Active Substance: ACETYLCYSTEINE
     Dosage: INFUSION

REACTIONS (2)
  - Haematoma [Recovered/Resolved]
  - Mucosal haemorrhage [Recovered/Resolved]
